FAERS Safety Report 18738027 (Version 1)
Quarter: 2021Q1

REPORT INFORMATION
  Report Type: Spontaneous
  Country: US (occurrence: US)
  Receive Date: 20210114
  Receipt Date: 20210114
  Transmission Date: 20210419
  Serious: Yes (Other)
  Sender: FDA-Public Use
  Company Number: US-ASTRAZENECA-2021A003542

PATIENT
  Sex: Female

DRUGS (1)
  1. SYMBICORT [Suspect]
     Active Substance: BUDESONIDE\FORMOTEROL FUMARATE DIHYDRATE
     Indication: CHRONIC OBSTRUCTIVE PULMONARY DISEASE
     Dosage: 160/4.5MCG 2 PUFFS TWICE A DAY
     Route: 055

REACTIONS (10)
  - Device issue [Unknown]
  - Sinus disorder [Unknown]
  - Intentional product misuse [Unknown]
  - Secretion discharge [Unknown]
  - Palpitations [Unknown]
  - Arteriovenous malformation [Unknown]
  - Pain [Unknown]
  - Cardiac disorder [Unknown]
  - Asthenia [Unknown]
  - Dizziness [Unknown]
